FAERS Safety Report 18261352 (Version 2)
Quarter: 2020Q3

REPORT INFORMATION
  Report Type: Spontaneous
  Country: US (occurrence: US)
  Receive Date: 20200914
  Receipt Date: 20200923
  Transmission Date: 20201103
  Serious: No
  Sender: FDA-Public Use
  Company Number: US-HORIZON-TEP-1876-2020

PATIENT
  Age: 75 Year
  Sex: Female
  Weight: 96 kg

DRUGS (13)
  1. TEPEZZA [Suspect]
     Active Substance: TEPROTUMUMAB-TRBW
     Indication: ENDOCRINE OPHTHALMOPATHY
     Dosage: 2000MG (42ML) EVERY 3 WEEKS
     Route: 042
     Dates: start: 20200616
  2. ATENOLOL. [Concomitant]
     Active Substance: ATENOLOL
  3. SELENIUM [Concomitant]
     Active Substance: SELENIUM
  4. TIMOLOL MALEATE. [Concomitant]
     Active Substance: TIMOLOL MALEATE
  5. ISOSORBIDE DINITRATE. [Concomitant]
     Active Substance: ISOSORBIDE DINITRATE
  6. METHIMAZOLE. [Concomitant]
     Active Substance: METHIMAZOLE
  7. METFORMIN ER GASTRIC [Concomitant]
  8. ATORVASTATIN CALCIUM. [Concomitant]
     Active Substance: ATORVASTATIN CALCIUM
  9. MAGNESIUM [Concomitant]
     Active Substance: MAGNESIUM
  10. ASPIRIN. [Concomitant]
     Active Substance: ASPIRIN
  11. HYDRALAZINE HCL [Concomitant]
     Active Substance: HYDRALAZINE HYDROCHLORIDE
  12. VALSARTAN. [Concomitant]
     Active Substance: VALSARTAN
  13. WARFARIN SODIUM. [Concomitant]
     Active Substance: WARFARIN SODIUM

REACTIONS (2)
  - Pain in extremity [Recovered/Resolved]
  - Fatigue [Recovered/Resolved]
